FAERS Safety Report 4626203-9 (Version None)
Quarter: 2005Q2

REPORT INFORMATION
  Report Type: 
  Country: None (occurrence: None)
  Receive Date: 20050331
  Receipt Date: 20040630
  Transmission Date: 20051028
  Serious: Yes (Other)
  Sender: FDA-Public Use
  Company Number: 200413238BCC

PATIENT
  Age: 40 Year
  Sex: Female
  Weight: 113.3993 kg

DRUGS (1)
  1. MIDOL [Suspect]
     Indication: DYSMENORRHOEA
     Dosage: 220 MG, ONCE, ORAL
     Route: 048
     Dates: start: 20040629

REACTIONS (8)
  - CARDIAC FLUTTER [None]
  - DYSPNOEA [None]
  - ERYTHEMA [None]
  - EUSTACHIAN TUBE DYSFUNCTION [None]
  - HYPERSENSITIVITY [None]
  - NASAL CONGESTION [None]
  - PRURITUS GENERALISED [None]
  - URTICARIA [None]
